FAERS Safety Report 10149758 (Version 3)
Quarter: 2014Q2

REPORT INFORMATION
  Report Type: Spontaneous
  Country: FR (occurrence: FR)
  Receive Date: 20140502
  Receipt Date: 20140519
  Transmission Date: 20141212
  Serious: Yes (Life-Threatening, Hospitalization)
  Sender: FDA-Public Use
  Company Number: FR-ELI_LILLY_AND_COMPANY-FR201402004728

PATIENT
  Age: 48 Year
  Sex: Female
  Weight: 58 kg

DRUGS (8)
  1. EFIENT [Suspect]
     Indication: ACUTE CORONARY SYNDROME
     Dosage: 60 MG, SINGLE LOADING DOSE
     Route: 048
     Dates: start: 20140124, end: 20140124
  2. REOPRO [Suspect]
     Indication: ACUTE CORONARY SYNDROME
     Dosage: 0.25 MG/KG, UNK
     Route: 042
     Dates: start: 20140124, end: 20140124
  3. ANGIOX [Suspect]
     Indication: ACUTE CORONARY SYNDROME
     Dosage: 1.75 MG/KG, EVERY HOUR
     Route: 042
     Dates: start: 20140124, end: 20140125
  4. ANGIOX [Suspect]
     Dosage: 0.25 MG/KG, EVERY HOUR
     Route: 042
     Dates: start: 20140124, end: 20140125
  5. ASPIRINE [Suspect]
     Indication: ACUTE CORONARY SYNDROME
     Dosage: 250 MG, UNK
     Route: 042
     Dates: start: 20140124, end: 20140125
  6. HEPARIN [Suspect]
     Indication: ACUTE CORONARY SYNDROME
     Dosage: 5000 IU, UNKNOWN
     Route: 042
     Dates: start: 20140124, end: 20140124
  7. HEPARIN [Suspect]
     Dosage: 1000 IU, UNK
     Dates: start: 20140125, end: 20140125
  8. KARDEGIC [Concomitant]
     Indication: STENT PLACEMENT
     Dosage: 75 MG, UNK
     Route: 048
     Dates: start: 20140125

REACTIONS (5)
  - Pulmonary alveolar haemorrhage [Recovered/Resolved]
  - Acute respiratory distress syndrome [Unknown]
  - Cardio-respiratory arrest [Recovered/Resolved]
  - Pneumonia staphylococcal [Unknown]
  - Proteinuria [Unknown]
